FAERS Safety Report 10650022 (Version 3)
Quarter: 2015Q1

REPORT INFORMATION
  Report Type: Spontaneous
  Country: NZ (occurrence: NZ)
  Receive Date: 20141212
  Receipt Date: 20150114
  Transmission Date: 20150720
  Serious: Yes (Other)
  Sender: FDA-Public Use
  Company Number: NZ-ABBVIE-14K-118-1309238-00

PATIENT
  Age: 25 Year
  Sex: Female

DRUGS (2)
  1. HUMIRA [Suspect]
     Active Substance: ADALIMUMAB
     Indication: CROHN^S DISEASE
     Route: 058
  2. YASMIN [Concomitant]
     Active Substance: DROSPIRENONE\ETHINYL ESTRADIOL
     Indication: PRODUCT USED FOR UNKNOWN INDICATION

REACTIONS (11)
  - Injection site urticaria [Recovered/Resolved]
  - Otorrhoea [Unknown]
  - Rash [Recovered/Resolved]
  - Hidradenitis [Unknown]
  - Nasal disorder [Recovering/Resolving]
  - Ear injury [Unknown]
  - Scar [Unknown]
  - Subcutaneous abscess [Unknown]
  - Staphylococcal infection [Recovered/Resolved]
  - Postpartum haemorrhage [Recovered/Resolved]
  - Impetigo [Not Recovered/Not Resolved]

NARRATIVE: CASE EVENT DATE: 20140916
